FAERS Safety Report 20715335 (Version 2)
Quarter: 2022Q2

REPORT INFORMATION
  Report Type: Report from Study
  Country: US (occurrence: US)
  Receive Date: 20220415
  Receipt Date: 20220428
  Transmission Date: 20220721
  Serious: Yes (Death, Disabling, Other)
  Sender: FDA-Public Use
  Company Number: US-PFIZER INC-202200132570

PATIENT
  Age: 53 Year
  Sex: Female
  Weight: 40.816 kg

DRUGS (1)
  1. IBRANCE [Suspect]
     Active Substance: PALBOCICLIB
     Indication: Breast cancer female
     Dosage: 125 MG, CYCLIC (QD 21 DAYS ON, 7 OFF.)
     Route: 048
     Dates: start: 20220111, end: 202204

REACTIONS (4)
  - Respiratory failure [Fatal]
  - Cerebral palsy [Unknown]
  - Back pain [Not Recovered/Not Resolved]
  - Speech disorder [Unknown]

NARRATIVE: CASE EVENT DATE: 20220410
